FAERS Safety Report 4406680-9 (Version None)
Quarter: 2004Q3

REPORT INFORMATION
  Report Type: 
  Country: None (occurrence: None)
  Receive Date: 20040723
  Receipt Date: 20040716
  Transmission Date: 20050211
  Serious: Yes (Other)
  Sender: FDA-Public Use
  Company Number: PHNU2004DE02577

PATIENT
  Sex: Male

DRUGS (1)
  1. SANDIMMUNE [Suspect]

REACTIONS (1)
  - SPEECH DISORDER [None]
